FAERS Safety Report 19673140 (Version 1)
Quarter: 2021Q3

REPORT INFORMATION
  Report Type: Spontaneous
  Country: US (occurrence: US)
  Receive Date: 20210809
  Receipt Date: 20210809
  Transmission Date: 20211014
  Serious: Yes (Other)
  Sender: FDA-Public Use
  Company Number: US-ACCORD-152317

PATIENT
  Age: 63 Year
  Sex: Female

DRUGS (13)
  1. METFORMIN [Concomitant]
     Active Substance: METFORMIN HYDROCHLORIDE
     Dates: start: 20190422
  2. DOCETAXEL ACCORD [Suspect]
     Active Substance: DOCETAXEL
     Indication: BREAST CANCER
     Dosage: NUMBER OF CYCLES: 04
     Dates: start: 20170714, end: 20170915
  3. POTASSIUM [Concomitant]
     Active Substance: POTASSIUM
     Dosage: ER
     Dates: start: 20170320, end: 20181203
  4. LOSARTAN. [Concomitant]
     Active Substance: LOSARTAN
     Dates: start: 20190320
  5. NEOSAR [Suspect]
     Active Substance: CYCLOPHOSPHAMIDE
     Indication: BREAST CANCER
     Dosage: NUMBER OF CYCLES: 04
     Dates: start: 20170714, end: 20170915
  6. TRAMADOL. [Concomitant]
     Active Substance: TRAMADOL
     Dosage: AS NEEDED
     Dates: start: 201705
  7. TRAMADOL. [Concomitant]
     Active Substance: TRAMADOL
     Dosage: AS NEEDED
     Dates: start: 20160920
  8. KLOTRAN [Concomitant]
  9. TRIAMTERENE. [Concomitant]
     Active Substance: TRIAMTERENE
  10. KLOR?CON [Concomitant]
     Active Substance: POTASSIUM CHLORIDE
     Dates: start: 20130409
  11. PROCHLORPERAZINE. [Concomitant]
     Active Substance: PROCHLORPERAZINE
     Dates: start: 20170706, end: 20171013
  12. LETROZOLE. [Concomitant]
     Active Substance: LETROZOLE
     Dates: start: 20171208, end: 20180114
  13. OLMESARTAN [Concomitant]
     Active Substance: OLMESARTAN
     Dates: start: 20161223, end: 20181203

REACTIONS (1)
  - Alopecia [Not Recovered/Not Resolved]

NARRATIVE: CASE EVENT DATE: 20170915
